FAERS Safety Report 19427288 (Version 1)
Quarter: 2021Q2

REPORT INFORMATION
  Report Type: Spontaneous
  Country: ES (occurrence: ES)
  Receive Date: 20210617
  Receipt Date: 20210617
  Transmission Date: 20210717
  Serious: Yes (Hospitalization, Other)
  Sender: FDA-Public Use
  Company Number: ES-TEVA-2021-ES-1922577

PATIENT
  Age: 81 Year
  Sex: Female

DRUGS (6)
  1. SIMVASTATINA RATIO 10 MG COMPRIMIDOS RECUBIERTOS CON PELICULA EFG , 28 [Concomitant]
     Indication: TYPE IIA HYPERLIPIDAEMIA
     Dosage: 10MG
     Route: 048
     Dates: start: 20201230
  2. CALCIO/VITAMINA D3 ROVI 1000 MG/880 UI COMPRIMIDOS MASTICABLES 30 COMP [Concomitant]
     Indication: OSTEOARTHRITIS
     Dosage: 1DF
     Route: 048
     Dates: start: 20201231
  3. PROLIA 60 MG SOLUCION INYECTABLE EN JERINGA PRECARGADA [Concomitant]
     Indication: OSTEOPOROSIS
     Route: 058
     Dates: start: 20140201
  4. LORMETAZEPAM NORMON 1 MG COMPRIMIDOS EFG, 30 COMPRIMIDOS [Concomitant]
     Indication: INSOMNIA
     Dosage: 1MG
     Route: 048
     Dates: start: 20100112
  5. CIDINE 1 MG/5 ML SOLUCION ORAL , 1 FRASCO DE 250 ML [Concomitant]
     Indication: ABDOMINAL PAIN
     Dosage: 1MG
     Dates: start: 20200914
  6. IBANDRONICO ACIDO (2762A) [Suspect]
     Active Substance: IBANDRONIC ACID
     Indication: OSTEOPOROSIS
     Dosage: 150MG
     Route: 048
     Dates: start: 20090206

REACTIONS (2)
  - Fibula fracture [Recovering/Resolving]
  - Atypical femur fracture [Recovering/Resolving]

NARRATIVE: CASE EVENT DATE: 20210519
